FAERS Safety Report 21931001 (Version 1)
Quarter: 2023Q1

REPORT INFORMATION
  Report Type: Spontaneous
  Country: US (occurrence: None)
  Receive Date: 20230130
  Receipt Date: 20230130
  Transmission Date: 20230418
  Serious: Yes (Hospitalization)
  Sender: FDA-Public Use
  Company Number: None

PATIENT
  Age: 68 Year
  Sex: Female

DRUGS (8)
  1. CAPECITABINE [Suspect]
     Active Substance: CAPECITABINE
  2. CLARITIN [Concomitant]
     Active Substance: LORATADINE
  3. COREG [Concomitant]
  4. CRESTOR [Concomitant]
  5. FERROUS SULFATE [Concomitant]
     Active Substance: FERROUS SULFATE
  6. MICARDIS [Concomitant]
  7. MULTIVITAMIN ADULT 50+ [Concomitant]
  8. VITAMIN B1 (THIAMINE) [Concomitant]

REACTIONS (4)
  - Intestinal perforation [None]
  - Tumour rupture [None]
  - Staphylococcal infection [None]
  - Fungal infection [None]

NARRATIVE: CASE EVENT DATE: 20230120
